FAERS Safety Report 4379507-1 (Version None)
Quarter: 2004Q2

REPORT INFORMATION
  Report Type: 
  Country: None (occurrence: None)
  Receive Date: 20040614
  Receipt Date: 20040513
  Transmission Date: 20050107
  Serious: Yes (Hospitalization, Disabling)
  Sender: FDA-Public Use
  Company Number: 04H-163-0262728-00

PATIENT
  Sex: Female

DRUGS (5)
  1. MARCAINE AND EPINEPHRINE FOR INJECTION (MARCAINE (BUPIVACAINE HCL/EPIN [Suspect]
     Indication: ANALGESIC EFFECT
     Dosage: 2 CC, ONCE, EPIDURAL
     Route: 008
     Dates: start: 20040414, end: 20040414
  2. BETHIDINE HYDROCHLORIDE [Concomitant]
  3. PROMETHAZINE HCL [Concomitant]
  4. FENTANYL [Concomitant]
  5. METHYLPREDNISOLONE ACETATE [Concomitant]

REACTIONS (12)
  - AMNESIA [None]
  - ANAESTHETIC COMPLICATION [None]
  - CEREBROSPINAL FLUID LEAKAGE [None]
  - DEPRESSED LEVEL OF CONSCIOUSNESS [None]
  - DYSPNOEA [None]
  - FALL [None]
  - FEELING ABNORMAL [None]
  - HYPOAESTHESIA [None]
  - MIGRAINE [None]
  - NAUSEA [None]
  - RASH [None]
  - RESPIRATORY RATE DECREASED [None]
